FAERS Safety Report 16872615 (Version 1)
Quarter: 2019Q4

REPORT INFORMATION
  Report Type: Spontaneous
  Country: US (occurrence: US)
  Receive Date: 20190807
  Receipt Date: 20190807
  Transmission Date: 20200122
  Serious: No
  Sender: FDA-Public Use
  Company Number: None

PATIENT
  Age: 62 Year
  Sex: Male

DRUGS (1)
  1. SUTENT [Suspect]
     Active Substance: SUNITINIB MALATE
     Indication: RENAL CELL CARCINOMA
     Dates: start: 201906

REACTIONS (4)
  - Skin exfoliation [None]
  - Skin discolouration [None]
  - Tenderness [None]
  - Pain in extremity [None]

NARRATIVE: CASE EVENT DATE: 20190701
